FAERS Safety Report 18083476 (Version 1)
Quarter: 2020Q3

REPORT INFORMATION
  Report Type: Spontaneous
  Country: US (occurrence: US)
  Receive Date: 20200729
  Receipt Date: 20200729
  Transmission Date: 20201103
  Serious: Yes (Other)
  Sender: FDA-Public Use
  Company Number: US-BRISTOL-MYERS SQUIBB COMPANY-BMS-2020-060524

PATIENT
  Sex: Male

DRUGS (1)
  1. NIVOLUMAB [Suspect]
     Active Substance: NIVOLUMAB
     Indication: CRANIOPHARYNGIOMA
     Dosage: 3 MILLIGRAM/KILOGRAM, EVERY 2?3 WEEKS
     Route: 065

REACTIONS (2)
  - Rash [Unknown]
  - Intentional product use issue [Unknown]
